FAERS Safety Report 8843019 (Version 1)
Quarter: 2012Q4

REPORT INFORMATION
  Report Type: 
  Country: US (occurrence: US)
  Receive Date: 20121016
  Receipt Date: 20121016
  Transmission Date: 20130627
  Serious: Yes (Hospitalization)
  Sender: FDA-Public Use
  Company Number: US-GLAXOSMITHKLINE-A0811026A

PATIENT
  Age: 58 Year
  Sex: Female

DRUGS (2)
  1. AVANDIA [Suspect]
     Indication: DIABETES MELLITUS
     Dosage: 4MG Per day
     Route: 048
     Dates: start: 200102, end: 200905
  2. HUMALOG [Concomitant]
     Dates: start: 2008

REACTIONS (4)
  - Cardiac failure congestive [Not Recovered/Not Resolved]
  - Ventricular extrasystoles [Unknown]
  - Atrial fibrillation [Unknown]
  - Fluid retention [Unknown]
